FAERS Safety Report 6300650-1 (Version None)
Quarter: 2009Q3

REPORT INFORMATION
  Report Type: 
  Country: None (occurrence: None)
  Receive Date: 20090803
  Receipt Date: 20090727
  Transmission Date: 20100115
  Serious: Yes (Hospitalization)
  Sender: FDA-Public Use
  Company Number: 09FI002772

PATIENT
  Age: 55 Year
  Sex: Female

DRUGS (4)
  1. SIMVASTATIN [Suspect]
     Indication: DRUG USE FOR UNKNOWN INDICATION
     Dosage: 20-40 MG, QD, ORAL
     Route: 048
  2. REUMACON (DEMETHYL PODOPHYLLOTOXIN BENZYLIDENE GLUCOSID, PODOPHYLLOTOX [Suspect]
     Indication: RHEUMATOID ARTHRITIS
     Dates: start: 20060501, end: 20070101
  3. AZATHIOPRINE (AZATHIIOPRINE) [Concomitant]
  4. RITUXIMAB (RITUXIMAB) [Concomitant]

REACTIONS (2)
  - DRUG INTERACTION [None]
  - RHABDOMYOLYSIS [None]
